FAERS Safety Report 21689197 (Version 1)
Quarter: 2022Q4

REPORT INFORMATION
  Report Type: Spontaneous
  Country: US (occurrence: None)
  Receive Date: 20221205
  Receipt Date: 20221205
  Transmission Date: 20230113
  Serious: No
  Sender: FDA-Public Use
  Company Number: None

PATIENT
  Sex: Female
  Weight: 34.93 kg

DRUGS (12)
  1. CAPECITABINE [Suspect]
     Active Substance: CAPECITABINE
     Indication: Pancreatic carcinoma
     Dosage: FREQUENCY : TWICE A DAY;?OTHER ROUTE : ORAL-M-F RADIATION DYS;?
     Route: 050
  2. ALBUTEROL [Concomitant]
     Active Substance: ALBUTEROL
  3. DEXAMETHASONE [Concomitant]
     Active Substance: DEXAMETHASONE
  4. IBUPROFEN [Concomitant]
     Active Substance: IBUPROFEN
  5. INCRUSE ELLIPTA [Concomitant]
     Active Substance: UMECLIDINIUM BROMIDE
  6. ELLIPTA [Concomitant]
  7. LIDOCAINE [Concomitant]
     Active Substance: LIDOCAINE
  8. LISINOPRIL [Concomitant]
     Active Substance: LISINOPRIL
  9. NALOXONE [Concomitant]
     Active Substance: NALOXONE
  10. OXYCODONE [Concomitant]
     Active Substance: OXYCODONE
  11. PAROXETINE [Concomitant]
     Active Substance: PAROXETINE
  12. PROCHLORPERAZINE [Concomitant]
     Active Substance: PROCHLORPERAZINE

REACTIONS (3)
  - COVID-19 [None]
  - Somnolence [None]
  - Asthenia [None]
